FAERS Safety Report 7477932-3 (Version None)
Quarter: 2011Q2

REPORT INFORMATION
  Report Type: 
  Country: None (occurrence: None)
  Receive Date: 20110513
  Receipt Date: 20110510
  Transmission Date: 20111010
  Serious: Yes (Hospitalization)
  Sender: FDA-Public Use
  Company Number: US-ELI_LILLY_AND_COMPANY-US201010003344

PATIENT
  Sex: Male

DRUGS (10)
  1. DECADRON [Concomitant]
     Indication: PREMEDICATION
     Dates: start: 20100901
  2. AUGMENTIN '125' [Concomitant]
     Indication: PYREXIA
     Route: 048
     Dates: start: 20100917, end: 20100927
  3. GRANISETRON HCL [Concomitant]
     Indication: NAUSEA
     Dates: start: 20100929
  4. LORTAB [Concomitant]
     Indication: PAIN
     Route: 048
     Dates: start: 20100809
  5. COMPAZINE [Concomitant]
     Indication: PROPHYLAXIS OF NAUSEA AND VOMITING
     Route: 048
     Dates: start: 20100809
  6. GEMCITABINE HYDROCHLORIDE [Suspect]
     Indication: PANCREATIC CARCINOMA METASTATIC
     Dosage: 1000 MG/M2 (1830MG), 1 IN 1 D
     Route: 042
     Dates: start: 20100901
  7. ZOFRAN [Concomitant]
     Indication: PROPHYLAXIS OF NAUSEA AND VOMITING
     Route: 048
     Dates: start: 20100809
  8. ALOXI [Concomitant]
     Indication: PREMEDICATION
     Route: 042
     Dates: start: 20100901
  9. AUGMENTIN '125' [Concomitant]
     Route: 048
     Dates: start: 20100929, end: 20101008
  10. GRANISETRON HCL [Concomitant]
     Dosage: UNK
     Route: 042

REACTIONS (2)
  - DEEP VEIN THROMBOSIS [None]
  - CELLULITIS [None]
